FAERS Safety Report 5605247-4 (Version None)
Quarter: 2008Q1

REPORT INFORMATION
  Report Type: 
  Country: None (occurrence: None)
  Receive Date: 20080129
  Receipt Date: 20080116
  Transmission Date: 20080703
  Serious: Yes (Other)
  Sender: FDA-Public Use
  Company Number: JP-PFIZER INC-2008006028

PATIENT
  Sex: Female

DRUGS (2)
  1. ZOLOFT [Suspect]
     Route: 048
  2. TOLEDOMIN [Concomitant]
     Route: 048

REACTIONS (4)
  - ANXIETY [None]
  - GLOSSITIS [None]
  - OBSTRUCTIVE AIRWAYS DISORDER [None]
  - SWOLLEN TONGUE [None]
